FAERS Safety Report 6307609-9 (Version None)
Quarter: 2009Q3

REPORT INFORMATION
  Report Type: 
  Country: None (occurrence: None)
  Receive Date: 20090812
  Receipt Date: 20090812
  Transmission Date: 20100115
  Serious: No
  Sender: FDA-Public Use
  Company Number: None

PATIENT
  Sex: Male
  Weight: 87.1 kg

DRUGS (15)
  1. DOXIL [Suspect]
     Dosage: 71 MG
  2. NEULASTA [Suspect]
     Dosage: 6 MG
  3. PREDNISONE [Suspect]
     Dosage: 400 MG
  4. RITUXIMAB (MOAB C2B8 ANTI CD20, CHIMERIC) [Suspect]
     Dosage: 765 MG
  5. VINCRISTINE SULFATE [Suspect]
     Dosage: 2 MG
  6. CYCLOPHOSPHAMIDE [Suspect]
     Dosage: 1224 MG
  7. ATENOLOL [Concomitant]
  8. COUMADIN [Concomitant]
  9. DIGOXIN [Concomitant]
  10. DOXAZOSIN [Concomitant]
  11. GLYBURIDE [Concomitant]
  12. METFORMIN [Concomitant]
  13. MULTI-VITAMIN [Concomitant]
  14. LOVAZA [Concomitant]
  15. SYNTHROID [Concomitant]

REACTIONS (1)
  - ATRIAL FIBRILLATION [None]
